FAERS Safety Report 7076567-4 (Version None)
Quarter: 2010Q4

REPORT INFORMATION
  Report Type: 
  Country: None (occurrence: None)
  Receive Date: 20101101
  Receipt Date: 20101019
  Transmission Date: 20110411
  Serious: Yes (Other)
  Sender: FDA-Public Use
  Company Number: US-PFIZER INC-2010133480

PATIENT
  Sex: Female
  Weight: 90.703 kg

DRUGS (4)
  1. LYRICA [Suspect]
     Indication: FIBROMYALGIA
     Dosage: 75 MG, 3X/DAY
     Route: 048
     Dates: start: 20050101
  2. BUTALBITAL ACETAMINOPHEN AND CAFFEINE [Concomitant]
     Dosage: UNK
  3. ADDERALL 10 [Concomitant]
     Dosage: UNK
  4. TYLENOL W/ CODEINE NO. 3 [Concomitant]
     Dosage: UNK

REACTIONS (4)
  - DYSPNOEA [None]
  - DYSPNOEA EXERTIONAL [None]
  - SWELLING [None]
  - WEIGHT INCREASED [None]
